FAERS Safety Report 6662486-1 (Version None)
Quarter: 2010Q1

REPORT INFORMATION
  Report Type: 
  Country: None (occurrence: None)
  Receive Date: 20100331
  Receipt Date: 20100326
  Transmission Date: 20100710
  Serious: Yes (Hospitalization, Other)
  Sender: FDA-Public Use
  Company Number: US-MERCK-00100317

PATIENT
  Sex: Male

DRUGS (7)
  1. ZOCOR [Suspect]
     Indication: HYPERCHOLESTEROLAEMIA
     Route: 048
     Dates: start: 19990101, end: 19990101
  2. ZOCOR [Suspect]
     Route: 048
     Dates: start: 19990101, end: 20100112
  3. INSULIN [Concomitant]
     Route: 065
  4. NORVASC [Concomitant]
     Route: 065
  5. LISINOPRIL [Concomitant]
     Route: 065
  6. HYDROCHLOROTHIAZIDE [Concomitant]
     Route: 065
  7. ASPIRIN [Concomitant]
     Route: 065

REACTIONS (8)
  - BLOOD GLUCOSE ABNORMAL [None]
  - CONTUSION [None]
  - DIABETES MELLITUS [None]
  - LETHARGY [None]
  - MUSCULAR WEAKNESS [None]
  - MUSCULOSKELETAL STIFFNESS [None]
  - MYOCARDIAL INFARCTION [None]
  - RHABDOMYOLYSIS [None]
